FAERS Safety Report 22626784 (Version 1)
Quarter: 2023Q2

REPORT INFORMATION
  Report Type: Spontaneous
  Country: US (occurrence: US)
  Receive Date: 20230622
  Receipt Date: 20230622
  Transmission Date: 20230721
  Serious: No
  Sender: FDA-Public Use
  Company Number: US-AMGEN-USASP2023107382

PATIENT
  Sex: Female

DRUGS (2)
  1. REPATHA [Suspect]
     Active Substance: EVOLOCUMAB
     Indication: Product used for unknown indication
     Dosage: UNK, EVERY 12 DAYS
     Route: 065
  2. ROSUVASTATIN [Concomitant]
     Active Substance: ROSUVASTATIN
     Dosage: 20 MILLIGRAM
     Route: 065

REACTIONS (1)
  - Off label use [Unknown]
